FAERS Safety Report 20458410 (Version 1)
Quarter: 2022Q1

REPORT INFORMATION
  Report Type: Spontaneous
  Country: CN (occurrence: CN)
  Receive Date: 20220211
  Receipt Date: 20220211
  Transmission Date: 20220423
  Serious: Yes (Life-Threatening, Hospitalization, Other)
  Sender: FDA-Public Use
  Company Number: None

PATIENT
  Age: 64 Year
  Sex: Female

DRUGS (14)
  1. ISONIAZID [Suspect]
     Active Substance: ISONIAZID
     Indication: Encephalitis
     Dosage: 600 MILLIGRAM, QOD
     Route: 042
  2. ISONIAZID [Suspect]
     Active Substance: ISONIAZID
     Indication: Meningitis tuberculous
  3. LEVOFLOXACIN [Suspect]
     Active Substance: LEVOFLOXACIN
     Indication: Encephalitis
     Dosage: 0.5 GRAM, QOD
     Route: 042
  4. LEVOFLOXACIN [Suspect]
     Active Substance: LEVOFLOXACIN
     Indication: Meningitis tuberculous
  5. LINEZOLID [Suspect]
     Active Substance: LINEZOLID
     Indication: Meningitis tuberculous
     Dosage: 600 MILLIGRAM, BID
     Route: 042
  6. LINEZOLID [Suspect]
     Active Substance: LINEZOLID
     Indication: Encephalitis
     Dosage: UNK
     Route: 048
  7. ETHAMBUTOL [Suspect]
     Active Substance: ETHAMBUTOL HYDROCHLORIDE
     Indication: Meningitis tuberculous
     Dosage: 750 MILLIGRAM, QOD
     Route: 048
  8. ETHAMBUTOL [Suspect]
     Active Substance: ETHAMBUTOL HYDROCHLORIDE
     Indication: Encephalitis
  9. PYRAZINAMIDE [Suspect]
     Active Substance: PYRAZINAMIDE
     Indication: Meningitis tuberculous
     Dosage: 0.5 GRAM, TID
     Route: 048
  10. PYRAZINAMIDE [Suspect]
     Active Substance: PYRAZINAMIDE
     Indication: Encephalitis
  11. RIFAMPIN [Suspect]
     Active Substance: RIFAMPIN
     Indication: Meningitis tuberculous
     Dosage: UNK
     Route: 065
  12. RIFAMPIN [Suspect]
     Active Substance: RIFAMPIN
     Indication: Encephalitis
  13. RIFAPENTINE [Suspect]
     Active Substance: RIFAPENTINE
     Indication: Meningitis tuberculous
     Dosage: 0.45 GRAM
     Route: 048
  14. RIFAPENTINE [Suspect]
     Active Substance: RIFAPENTINE
     Indication: Encephalitis

REACTIONS (7)
  - Coagulopathy [Recovered/Resolved]
  - Hyperkalaemia [Recovered/Resolved]
  - Haemodynamic instability [Recovered/Resolved]
  - Acute kidney injury [Recovered/Resolved]
  - Lactic acidosis [Recovered/Resolved]
  - Hypotension [Recovered/Resolved]
  - Coma [Recovered/Resolved]
